FAERS Safety Report 11693069 (Version 1)
Quarter: 2015Q4

REPORT INFORMATION
  Report Type: Spontaneous
  Country: US (occurrence: None)
  Receive Date: 20151102
  Receipt Date: 20151102
  Transmission Date: 20160304
  Serious: Yes (Life-Threatening, Hospitalization, Disabling)
  Sender: FDA-Public Use
  Company Number: None

PATIENT
  Age: 43 Year
  Sex: Male
  Weight: 97.52 kg

DRUGS (3)
  1. INVOKANA [Suspect]
     Active Substance: CANAGLIFLOZIN
     Indication: DIABETES MELLITUS INADEQUATE CONTROL
     Dosage: 1 PILL ONCE DAILY
     Route: 048
  2. ADVIL [Concomitant]
     Active Substance: IBUPROFEN
  3. LOW DOSE ASPIRIN [Concomitant]
     Active Substance: ASPIRIN

REACTIONS (10)
  - Renal disorder [None]
  - Blood cholesterol increased [None]
  - Drug interaction [None]
  - Abdominal pain [None]
  - Renal pain [None]
  - Myocardial infarction [None]
  - Parathyroid disorder [None]
  - Blood glucose fluctuation [None]
  - Hypocalcaemia [None]
  - Coronary artery occlusion [None]

NARRATIVE: CASE EVENT DATE: 20131001
